FAERS Safety Report 18799270 (Version 1)
Quarter: 2021Q1

REPORT INFORMATION
  Report Type: Spontaneous
  Country: CN (occurrence: CN)
  Receive Date: 20210128
  Receipt Date: 20210128
  Transmission Date: 20210419
  Serious: Yes (Other)
  Sender: FDA-Public Use
  Company Number: CN-ROCHE-2753606

PATIENT
  Age: 57 Year
  Sex: Female

DRUGS (6)
  1. TORIPALIMAB. [Concomitant]
     Active Substance: TORIPALIMAB
     Indication: ADENOCARCINOMA GASTRIC
     Dates: start: 20200304
  2. OXALIPLATIN. [Concomitant]
     Active Substance: OXALIPLATIN
     Indication: ADENOCARCINOMA GASTRIC
     Dates: start: 20200211
  3. TEGAFUR GIMERACIL AND OTERACIL POTASSIUM [Concomitant]
     Active Substance: GIMERACIL\OTERACIL\TEGAFUR
     Indication: ADENOCARCINOMA GASTRIC
     Route: 048
     Dates: start: 20200211
  4. PYROTINIB [Concomitant]
     Active Substance: PYROTINIB
     Indication: ADENOCARCINOMA GASTRIC
     Dates: start: 20200717
  5. APATINIB [Concomitant]
     Active Substance: APATINIB
     Indication: ADENOCARCINOMA GASTRIC
     Route: 048
     Dates: start: 20200717
  6. HERCEPTIN [Suspect]
     Active Substance: TRASTUZUMAB
     Indication: ADENOCARCINOMA GASTRIC
     Route: 065
     Dates: start: 20200304

REACTIONS (7)
  - Coronary artery stenosis [Unknown]
  - Myocardial bridging [Unknown]
  - Pulmonary mass [Unknown]
  - Eyelid ptosis [Recovering/Resolving]
  - Arteriosclerosis coronary artery [Unknown]
  - Myocardial ischaemia [Unknown]
  - Asthenia [Unknown]

NARRATIVE: CASE EVENT DATE: 20200427
